FAERS Safety Report 12116101 (Version 2)
Quarter: 2016Q2

REPORT INFORMATION
  Report Type: Spontaneous
  Country: MT (occurrence: MT)
  Receive Date: 20160225
  Receipt Date: 20160413
  Transmission Date: 20160815
  Serious: Yes (Hospitalization)
  Sender: FDA-Public Use
  Company Number: PHHY2016MT024670

PATIENT
  Sex: Male

DRUGS (2)
  1. ZOLEDRONATE [Suspect]
     Active Substance: ZOLEDRONIC ACID
     Indication: METASTASES TO BONE
     Route: 065
  2. AFINITOR [Suspect]
     Active Substance: EVEROLIMUS
     Indication: PANCREATIC NEUROENDOCRINE TUMOUR
     Dosage: 10 MG, ONCE DAILY
     Route: 048

REACTIONS (6)
  - Dehydration [Unknown]
  - Lower respiratory tract infection [Recovered/Resolved]
  - Dehydration [Recovered/Resolved]
  - Pyrexia [Unknown]
  - Confusional state [Unknown]
  - Renal failure [Recovered/Resolved]
